FAERS Safety Report 6158523-3 (Version None)
Quarter: 2009Q2

REPORT INFORMATION
  Report Type: 
  Country: None (occurrence: None)
  Receive Date: 20090417
  Receipt Date: 20090303
  Transmission Date: 20091009
  Serious: Yes (Other)
  Sender: FDA-Public Use
  Company Number: PHHY2009JP13887

PATIENT
  Age: 40 Year
  Sex: Female

DRUGS (1)
  1. FAMCICLOVIR [Suspect]
     Dosage: 1500 MG/DAY
     Route: 048
     Dates: start: 20090220, end: 20090220

REACTIONS (1)
  - DEPRESSED LEVEL OF CONSCIOUSNESS [None]
